FAERS Safety Report 25989643 (Version 1)
Quarter: 2025Q4

REPORT INFORMATION
  Report Type: Spontaneous
  Country: US (occurrence: None)
  Receive Date: 20251031
  Receipt Date: 20251031
  Transmission Date: 20260118
  Serious: Yes (Disabling)
  Sender: FDA-CTU
  Company Number: None

PATIENT
  Age: 64 Year
  Sex: Female

DRUGS (1)
  1. ELIQUIS [Suspect]
     Active Substance: APIXABAN
     Indication: Deep vein thrombosis
     Dosage: FREQUENCY : TWICE A DAY;?
     Route: 048
     Dates: start: 20240415, end: 20240708

REACTIONS (3)
  - Tongue disorder [None]
  - Loss of personal independence in daily activities [None]
  - Peripheral sensorimotor neuropathy [None]

NARRATIVE: CASE EVENT DATE: 20240401
